FAERS Safety Report 10045116 (Version 3)
Quarter: 2014Q3

REPORT INFORMATION
  Report Type: Report from Study
  Country: CA (occurrence: CA)
  Receive Date: 20140328
  Receipt Date: 20140730
  Transmission Date: 20150326
  Serious: Yes (Death, Other)
  Sender: FDA-Public Use
  Company Number: CA-BRISTOL-MYERS SQUIBB COMPANY-20551636

PATIENT
  Age: 56 Year
  Sex: Male

DRUGS (10)
  1. CANDESARTAN [Concomitant]
     Active Substance: CANDESARTAN
  2. HYDROCHLOROTHIAZIDE. [Concomitant]
     Active Substance: HYDROCHLOROTHIAZIDE
  3. INSULIN [Concomitant]
     Active Substance: INSULIN NOS
  4. FOLIC ACID. [Concomitant]
     Active Substance: FOLIC ACID
  5. IBUPROFEN. [Concomitant]
     Active Substance: IBUPROFEN
  6. CYMBALTA [Concomitant]
     Active Substance: DULOXETINE HYDROCHLORIDE
  7. ZOPICLONE [Concomitant]
     Active Substance: ZOPICLONE
  8. BROMAZEPAM [Concomitant]
     Active Substance: BROMAZEPAM
  9. ORENCIA [Suspect]
     Active Substance: ABATACEPT
     Indication: RHEUMATOID ARTHRITIS
     Dosage: ONGOING?LOT NO:3J75954-EXP:JUL2016
     Route: 042
     Dates: start: 20120709, end: 20140623
  10. CARVEDILOL. [Concomitant]
     Active Substance: CARVEDILOL

REACTIONS (2)
  - Cardiac failure [Unknown]
  - Myocardial infarction [Fatal]

NARRATIVE: CASE EVENT DATE: 2013
